FAERS Safety Report 7742184-3 (Version None)
Quarter: 2011Q3

REPORT INFORMATION
  Report Type: 
  Country: None (occurrence: None)
  Receive Date: 20110912
  Receipt Date: 20110908
  Transmission Date: 20111222
  Serious: Yes (Death, Hospitalization)
  Sender: FDA-Public Use
  Company Number: PHHY2011TW78696

PATIENT
  Sex: Female
  Weight: 71 kg

DRUGS (2)
  1. EXJADE [Suspect]
     Indication: IRON OVERLOAD
     Dosage: 500 MG, UNK
     Route: 048
     Dates: start: 20100409, end: 20110718
  2. ASPIRIN [Concomitant]
     Dosage: UNK UKN, UNK

REACTIONS (26)
  - HYPOTENSION [None]
  - URINARY TRACT INFECTION [None]
  - MUSCLE DISORDER [None]
  - ALTERED STATE OF CONSCIOUSNESS [None]
  - URINE OUTPUT DECREASED [None]
  - GASTROINTESTINAL HAEMORRHAGE [None]
  - CARDIAC FAILURE CONGESTIVE [None]
  - OEDEMA [None]
  - CARDIAC ENZYMES INCREASED [None]
  - ELECTROCARDIOGRAM ST SEGMENT DEPRESSION [None]
  - PERIPHERAL ARTERIAL OCCLUSIVE DISEASE [None]
  - CEREBROVASCULAR ACCIDENT [None]
  - DYSPEPSIA [None]
  - PULMONARY CONGESTION [None]
  - THROMBOCYTOPENIA [None]
  - RENAL IMPAIRMENT [None]
  - BLOOD PRESSURE DECREASED [None]
  - VENTRICULAR FIBRILLATION [None]
  - ACUTE MYOCARDIAL INFARCTION [None]
  - CARDIOGENIC SHOCK [None]
  - CORONARY ARTERY DISEASE [None]
  - GENERAL PHYSICAL HEALTH DETERIORATION [None]
  - WEIGHT INCREASED [None]
  - COLD SWEAT [None]
  - ANAEMIA [None]
  - HYPOXIA [None]
